FAERS Safety Report 7931401-2 (Version None)
Quarter: 2011Q4

REPORT INFORMATION
  Report Type: 
  Country: None (occurrence: None)
  Receive Date: 20111121
  Receipt Date: 20111118
  Transmission Date: 20120403
  Serious: Yes (Hospitalization, Congenital Anomaly, Other)
  Sender: FDA-Public Use
  Company Number: DE-PFIZER INC-2011282572

PATIENT
  Sex: Male
  Weight: 4.12 kg

DRUGS (5)
  1. FOLIC ACID [Concomitant]
     Indication: PROPHYLAXIS OF NEURAL TUBE DEFECT
     Dosage: 0.8 MG, UNK
     Route: 064
     Dates: start: 20101204
  2. LORAZEPAM [Concomitant]
     Dosage: 0.5 MG, 1X/DAY
     Route: 064
     Dates: start: 20101220, end: 20110125
  3. SERTRALINE HYDROCHLORIDE [Suspect]
     Dosage: 100 MG, UNK
     Route: 064
     Dates: start: 20110119, end: 20110802
  4. VOMEX A [Concomitant]
     Indication: VOMITING IN PREGNANCY
     Dosage: BETWEEN GW 9 AND 17 PROBABLY ONLY TWICE TAKEN
     Route: 064
     Dates: start: 20110303
  5. SERTRALINE HYDROCHLORIDE [Suspect]
     Indication: DEPRESSION
     Dosage: 75 MG, UNK
     Route: 064
     Dates: start: 20101220, end: 20110118

REACTIONS (8)
  - TRANSAMINASES INCREASED [None]
  - DRUG WITHDRAWAL SYNDROME [None]
  - LARGE FOR DATES BABY [None]
  - MATERNAL EXPOSURE TIMING UNSPECIFIED [None]
  - PETECHIAE [None]
  - NEONATAL RESPIRATORY DISTRESS SYNDROME [None]
  - ATRIAL SEPTAL DEFECT [None]
  - HAEMANGIOMA CONGENITAL [None]
